FAERS Safety Report 5928146-7 (Version None)
Quarter: 2008Q4

REPORT INFORMATION
  Report Type: 
  Country: None (occurrence: None)
  Receive Date: 20081022
  Receipt Date: 20081022
  Transmission Date: 20090506
  Serious: Yes (Other)
  Sender: FDA-Public Use
  Company Number: None

PATIENT
  Age: 28 Year
  Sex: Female
  Weight: 126.1 kg

DRUGS (1)
  1. CELEXA [Suspect]
     Indication: DEPRESSION
     Dosage: 40 1 PER DAY PO
     Route: 048
     Dates: start: 20081013, end: 20081020

REACTIONS (2)
  - HEADACHE [None]
  - SUICIDAL IDEATION [None]
